FAERS Safety Report 9611846 (Version 1)
Quarter: 2013Q4

REPORT INFORMATION
  Report Type: Spontaneous
  Country: BR (occurrence: BR)
  Receive Date: 20131010
  Receipt Date: 20131010
  Transmission Date: 20140711
  Serious: Yes (Death, Other)
  Sender: FDA-Public Use
  Company Number: PHHY2013BR111249

PATIENT
  Age: 64 Year
  Sex: Male

DRUGS (3)
  1. EVEROLIMUS [Suspect]
     Indication: NEUROENDOCRINE TUMOUR
     Dosage: 10 MG, QD
     Route: 048
     Dates: start: 20100827
  2. EVEROLIMUS [Suspect]
     Dosage: 7.5 MG, PER DAY
     Route: 048
     Dates: start: 20110413
  3. OCTREOTIDE, LONG ACTING [Suspect]
     Indication: NEUROENDOCRINE TUMOUR
     Dosage: 40 MG, QMO
     Route: 030
     Dates: start: 20100827

REACTIONS (11)
  - Death [Fatal]
  - General physical health deterioration [Unknown]
  - Ascites [Unknown]
  - Concomitant disease progression [Unknown]
  - Metastases to bone [Unknown]
  - Metastases to liver [Unknown]
  - Urinary tract infection [Recovering/Resolving]
  - Pneumonia [Recovering/Resolving]
  - Oral candidiasis [Recovering/Resolving]
  - Diarrhoea [Recovering/Resolving]
  - Decreased appetite [Recovering/Resolving]
